FAERS Safety Report 19619425 (Version 1)
Quarter: 2021Q3

REPORT INFORMATION
  Report Type: Spontaneous
  Country: FR (occurrence: FR)
  Receive Date: 20210727
  Receipt Date: 20210727
  Transmission Date: 20211014
  Serious: Yes (Hospitalization, Other)
  Sender: FDA-Public Use
  Company Number: FR-BAXTER-2021BAX021709

PATIENT
  Age: 69 Year
  Sex: Female

DRUGS (11)
  1. ENDOXAN 1000 MG, POUDRE POUR SOLUTIONINJECTABLE [Suspect]
     Active Substance: CYCLOPHOSPHAMIDE
     Indication: VASCULITIS NECROTISING
  2. RITUXIMAB. [Suspect]
     Active Substance: RITUXIMAB
     Indication: VASCULITIS NECROTISING
     Dosage: ON DAY 1, DAY 7 AND THEN ONCE A MONTH
     Route: 041
  3. DEXAMETHASONE. [Suspect]
     Active Substance: DEXAMETHASONE
     Indication: CASTLEMAN^S DISEASE
  4. AMOXICILLIN, CLAVULANIC ACID [Concomitant]
     Active Substance: AMOXICILLIN\CLAVULANIC ACID
     Indication: PRODUCT USED FOR UNKNOWN INDICATION
     Route: 065
  5. METHYLPREDNISOLONE. [Suspect]
     Active Substance: METHYLPREDNISOLONE
     Indication: CASTLEMAN^S DISEASE
  6. RITUXIMAB. [Suspect]
     Active Substance: RITUXIMAB
     Indication: CASTLEMAN^S DISEASE
  7. TOCILIZUMAB. [Suspect]
     Active Substance: TOCILIZUMAB
     Indication: VASCULITIS NECROTISING
     Route: 042
  8. DEXAMETHASONE. [Suspect]
     Active Substance: DEXAMETHASONE
     Indication: VASCULITIS NECROTISING
     Route: 065
  9. METHYLPREDNISOLONE. [Suspect]
     Active Substance: METHYLPREDNISOLONE
     Indication: VASCULITIS NECROTISING
     Route: 040
  10. ENDOXAN 1000 MG, POUDRE POUR SOLUTIONINJECTABLE [Suspect]
     Active Substance: CYCLOPHOSPHAMIDE
     Indication: CASTLEMAN^S DISEASE
     Route: 065
  11. TOCILIZUMAB. [Suspect]
     Active Substance: TOCILIZUMAB
     Indication: CASTLEMAN^S DISEASE

REACTIONS (7)
  - Intentional product use issue [Unknown]
  - Acute pulmonary oedema [Unknown]
  - Aspergillus infection [Unknown]
  - Hypoxia [Unknown]
  - Off label use [Unknown]
  - Bronchopulmonary aspergillosis [Recovering/Resolving]
  - Pneumonia [Unknown]
